FAERS Safety Report 15186606 (Version 2)
Quarter: 2019Q1

REPORT INFORMATION
  Report Type: Report from Study
  Country: US (occurrence: US)
  Receive Date: 20180723
  Receipt Date: 20190130
  Transmission Date: 20190417
  Serious: No
  Sender: FDA-Public Use
  Company Number: US-EXELIXIS-CABO-18014296

PATIENT
  Sex: Male

DRUGS (1)
  1. CABOMETYX [Suspect]
     Active Substance: CABOZANTINIB S-MALATE
     Indication: RENAL CANCER
     Dosage: 60 MG, QD MORNING WITHOUT FOOD
     Route: 048
     Dates: start: 201801

REACTIONS (8)
  - Ageusia [Not Recovered/Not Resolved]
  - Pain of skin [Unknown]
  - Diarrhoea [Not Recovered/Not Resolved]
  - Dyspepsia [Recovered/Resolved]
  - Neuropathy peripheral [Not Recovered/Not Resolved]
  - Eye discharge [Not Recovered/Not Resolved]
  - Secretion discharge [Not Recovered/Not Resolved]
  - Fatigue [Unknown]

NARRATIVE: CASE EVENT DATE: 2018
